FAERS Safety Report 20022277 (Version 1)
Quarter: 2021Q4

REPORT INFORMATION
  Report Type: Spontaneous
  Country: RO (occurrence: RO)
  Receive Date: 20211102
  Receipt Date: 20211102
  Transmission Date: 20220303
  Serious: Yes (Other)
  Sender: FDA-Public Use
  Company Number: RO-TEVA-2021-RO-1971262

PATIENT
  Sex: Female

DRUGS (1)
  1. COPAXONE [Suspect]
     Active Substance: GLATIRAMER ACETATE
     Indication: Relapsing-remitting multiple sclerosis
     Dosage: 17.1429 MILLIGRAM DAILY; ADMINISTERED WITH C-SYNC
     Route: 065
     Dates: start: 201805

REACTIONS (3)
  - Relapsing multiple sclerosis [Unknown]
  - Nodule [Recovering/Resolving]
  - Product dose omission issue [Unknown]

NARRATIVE: CASE EVENT DATE: 20210801
